FAERS Safety Report 14856835 (Version 1)
Quarter: 2018Q2

REPORT INFORMATION
  Report Type: Spontaneous
  Country: US (occurrence: US)
  Receive Date: 20180507
  Receipt Date: 20180507
  Transmission Date: 20180711
  Serious: No
  Sender: FDA-Public Use
  Company Number: US-ROCHE-2022174

PATIENT
  Sex: Male

DRUGS (5)
  1. ALPRAZOLAM. [Concomitant]
     Active Substance: ALPRAZOLAM
  2. PREDNISONE. [Concomitant]
     Active Substance: PREDNISONE
  3. ASMANEX [Concomitant]
     Active Substance: MOMETASONE FUROATE
  4. SIMVASTATIN. [Concomitant]
     Active Substance: SIMVASTATIN
  5. ESBRIET [Suspect]
     Active Substance: PIRFENIDONE
     Indication: IDIOPATHIC PULMONARY FIBROSIS
     Route: 048
     Dates: start: 20170608

REACTIONS (1)
  - Rhinorrhoea [Unknown]
